FAERS Safety Report 7936641-4 (Version None)
Quarter: 2011Q4

REPORT INFORMATION
  Report Type: 
  Country: None (occurrence: None)
  Receive Date: 20111123
  Receipt Date: 20111114
  Transmission Date: 20120403
  Serious: Yes (Hospitalization)
  Sender: FDA-Public Use
  Company Number: US-BAYER-2011-057664

PATIENT
  Age: 44 Year
  Sex: Female
  Weight: 102.4 kg

DRUGS (4)
  1. YASMIN [Suspect]
     Indication: CONTRACEPTION
     Dosage: UNK
     Route: 048
     Dates: start: 20050301, end: 20080701
  2. YASMIN [Suspect]
     Indication: MENOPAUSAL SYMPTOMS
  3. DROSPIRENONE AND ETHINYL ESTRADIOL [Suspect]
     Indication: CONTRACEPTION
     Dosage: UNK
     Route: 048
     Dates: start: 20080801, end: 20100401
  4. YASMIN [Suspect]
     Indication: MENSTRUATION IRREGULAR

REACTIONS (3)
  - CHOLECYSTITIS [None]
  - INJURY [None]
  - PAIN [None]
